FAERS Safety Report 7495889-6 (Version None)
Quarter: 2011Q2

REPORT INFORMATION
  Report Type: 
  Country: None (occurrence: None)
  Receive Date: 20110523
  Receipt Date: 20110420
  Transmission Date: 20111010
  Serious: Yes (Death, Life-Threatening, Hospitalization)
  Sender: FDA-Public Use
  Company Number: CN-BRISTOL-MYERS SQUIBB COMPANY-14597850

PATIENT
  Age: 78 Year
  Sex: Female

DRUGS (9)
  1. PLACEBO [Suspect]
     Indication: THROMBOSIS PROPHYLAXIS
     Dosage: INTERRUPTED ON 20APR09
     Route: 048
     Dates: start: 20080830
  2. CITICOLINE [Concomitant]
     Dates: start: 20090420
  3. FUROSEMIDE [Concomitant]
     Dates: start: 20090420
  4. MANNITOL [Concomitant]
     Dates: start: 20090420
  5. FRUCTOSE [Concomitant]
     Dates: start: 20090420
  6. GLYCEROL 2.6% [Concomitant]
     Dates: start: 20090420
  7. WARFARIN SODIUM [Suspect]
     Indication: THROMBOSIS PROPHYLAXIS
     Dosage: INTERRUPTED ON 20APR09
     Route: 048
     Dates: start: 20080830
  8. ASPIRIN [Concomitant]
     Dates: start: 20090422, end: 20090425
  9. APIXABAN [Suspect]
     Indication: THROMBOSIS PROPHYLAXIS
     Dosage: INTERRUPTED 20-APR-2009
     Route: 048
     Dates: start: 20080830

REACTIONS (12)
  - OEDEMA PERIPHERAL [None]
  - RENAL FAILURE [None]
  - RALES [None]
  - ALANINE AMINOTRANSFERASE INCREASED [None]
  - PLATELET COUNT DECREASED [None]
  - STRESS ULCER [None]
  - RESPIRATORY FAILURE [None]
  - BLOOD PRESSURE FLUCTUATION [None]
  - ASPARTATE AMINOTRANSFERASE INCREASED [None]
  - CARDIAC FAILURE [None]
  - CIRCULATORY COLLAPSE [None]
  - CEREBRAL INFARCTION [None]
